FAERS Safety Report 4935187-5 (Version None)
Quarter: 2006Q1

REPORT INFORMATION
  Report Type: 
  Country: None (occurrence: None)
  Receive Date: 20060302
  Receipt Date: 20060116
  Transmission Date: 20060701
  Serious: Yes (Hospitalization, Other)
  Sender: FDA-Public Use
  Company Number: US 010973280

PATIENT
  Age: 59 Year
  Sex: Male
  Weight: 94.5 kg

DRUGS (10)
  1. HUMALOG [Suspect]
     Indication: DIABETES MELLITUS
  2. HUMALOG [Suspect]
     Indication: DIABETES MELLITUS
     Dosage: 12 U, AS NEEDED,
     Dates: start: 20010830
  3. HUMULIN N [Suspect]
     Indication: DIABETES MELLITUS
     Dosage: SEE IMAGE
     Dates: start: 20030101
  4. HUMULIN N [Suspect]
     Indication: DIABETES MELLITUS
     Dosage: SEE IMAGE
     Dates: start: 20040101
  5. ALBUTEROL [Concomitant]
  6. ATROVENT [Concomitant]
  7. PULMICORT [Concomitant]
  8. ADVAIR DISKUS 100/50 [Concomitant]
  9. NOVOLOG [Concomitant]
  10. ASPIRIN [Concomitant]

REACTIONS (12)
  - BLOOD GLUCOSE INCREASED [None]
  - BODY HEIGHT DECREASED [None]
  - CAROTID ARTERY OCCLUSION [None]
  - DRUG INEFFECTIVE [None]
  - DYSPNOEA [None]
  - FEELING JITTERY [None]
  - INCORRECT DOSE ADMINISTERED [None]
  - INJECTION SITE HAEMORRHAGE [None]
  - INJECTION SITE IRRITATION [None]
  - INSOMNIA [None]
  - PHARMACEUTICAL PRODUCT COMPLAINT [None]
  - STENT PLACEMENT [None]
